FAERS Safety Report 10630675 (Version 2)
Quarter: 2015Q1

REPORT INFORMATION
  Report Type: Spontaneous
  Country: US (occurrence: US)
  Receive Date: 20141205
  Receipt Date: 20150102
  Transmission Date: 20150720
  Serious: Yes (Other)
  Sender: FDA-Public Use
  Company Number: US-BRISTOL-MYERS SQUIBB COMPANY-21321682

PATIENT
  Age: 60 Year
  Sex: Female

DRUGS (7)
  1. VISINE [Concomitant]
     Active Substance: TETRAHYDROZOLINE HYDROCHLORIDE
  2. HYDROCHLOROTHIAZIDE. [Concomitant]
     Active Substance: HYDROCHLOROTHIAZIDE
  3. MULTI VITAMIN [Concomitant]
     Active Substance: VITAMINS
  4. LOSARTAN [Concomitant]
     Active Substance: LOSARTAN
  5. SPRYCEL [Suspect]
     Active Substance: DASATINIB
     Indication: CHRONIC MYELOID LEUKAEMIA
     Dosage: 100 MG, QD
     Route: 048
     Dates: start: 20130910
  6. TOPROL XL [Concomitant]
     Active Substance: METOPROLOL SUCCINATE
  7. TIABENDAZOLE [Concomitant]

REACTIONS (2)
  - Alopecia [Unknown]
  - Arthropathy [Unknown]

NARRATIVE: CASE EVENT DATE: 20141007
